FAERS Safety Report 9704618 (Version 1)
Quarter: 2013Q4

REPORT INFORMATION
  Report Type: Report from Study
  Country: GB (occurrence: GB)
  Receive Date: 20131122
  Receipt Date: 20131122
  Transmission Date: 20140711
  Serious: Yes (Hospitalization)
  Sender: FDA-Public Use
  Company Number: GB-ABBVIE-13P-167-1170061-00

PATIENT
  Age: 53 Year
  Sex: Female

DRUGS (2)
  1. HUMIRA [Suspect]
     Indication: RHEUMATOID ARTHRITIS
     Dosage: UNKNOWN
     Route: 050
  2. HUMIRA [Suspect]
     Dosage: UNKNOWN
     Route: 050
     Dates: start: 201308

REACTIONS (4)
  - Unevaluable event [Recovered/Resolved]
  - Gastric infection [Recovered/Resolved]
  - Infection [Recovered/Resolved]
  - Abscess [Recovered/Resolved]
